FAERS Safety Report 25901275 (Version 4)
Quarter: 2025Q4

REPORT INFORMATION
  Report Type: Report from Study
  Country: US (occurrence: US)
  Receive Date: 20251009
  Receipt Date: 20251110
  Transmission Date: 20260117
  Serious: Yes (Life-Threatening, Hospitalization, Other)
  Sender: EMD SERONO INC
  Company Number: US-Merck Healthcare KGaA-2025050335

PATIENT
  Age: 62 Year
  Sex: Female

DRUGS (2)
  1. MAVENCLAD [Suspect]
     Active Substance: CLADRIBINE
     Indication: Multiple sclerosis
     Dosage: YEAR ONE MONTH ONE THERAPY
  2. MAVENCLAD [Suspect]
     Active Substance: CLADRIBINE
     Dosage: YEAR ONE MONTH TWO THERAPY
     Dates: start: 20241212, end: 20241216

REACTIONS (10)
  - Loss of consciousness [Unknown]
  - Cyanosis [Unknown]
  - Pneumonia bacterial [Recovered/Resolved]
  - Head injury [Unknown]
  - Fall [Unknown]
  - Face injury [Unknown]
  - Bacterial infection [Unknown]
  - Anxiety [Unknown]
  - Dermatitis contact [Unknown]
  - Urticaria [Unknown]

NARRATIVE: CASE EVENT DATE: 20250406
